FAERS Safety Report 11849326 (Version 4)
Quarter: 2016Q1

REPORT INFORMATION
  Report Type: Report from Study
  Country: RU (occurrence: RU)
  Receive Date: 20151218
  Receipt Date: 20160209
  Transmission Date: 20160526
  Serious: Yes (Hospitalization)
  Sender: FDA-Public Use
  Company Number: PHHO2015RU020733

PATIENT
  Age: 7 Year
  Sex: Female
  Weight: 32 kg

DRUGS (2)
  1. ACZ885 [Suspect]
     Active Substance: CANAKINUMAB
     Indication: JUVENILE IDIOPATHIC ARTHRITIS
     Dosage: 4 MG/KG, QW4
     Route: 058
     Dates: start: 20150921, end: 20151116
  2. ACZ885 [Suspect]
     Active Substance: CANAKINUMAB
     Dosage: 4 MG/KG, QW4
     Route: 058
     Dates: start: 20151221

REACTIONS (2)
  - Juvenile idiopathic arthritis [Recovered/Resolved]
  - Ear infection [Recovered/Resolved]

NARRATIVE: CASE EVENT DATE: 20151211
